FAERS Safety Report 8795321 (Version 3)
Quarter: 2012Q4

REPORT INFORMATION
  Report Type: 
  Country: DK (occurrence: DK)
  Receive Date: 20120918
  Receipt Date: 20121122
  Transmission Date: 20130627
  Serious: Yes (Other)
  Sender: FDA-Public Use
  Company Number: DK-ROCHE-1125323

PATIENT
  Sex: Female

DRUGS (6)
  1. BONVIVA [Suspect]
     Indication: PRODUCT USED FOR UNKNOWN INDICATION
     Route: 048
  2. LOSARTAN POTASSIUM [Concomitant]
     Route: 048
  3. HJERTEMAGNYL [Concomitant]
     Route: 048
  4. AMLODIPIN [Concomitant]
     Route: 048
  5. HYDROCHLOROTHIAZIDE/LOSARTAN POTASSIUM [Concomitant]
     Dosage: 12.5/50 mg
     Route: 048
  6. KALEORID [Concomitant]
     Route: 048

REACTIONS (2)
  - Tooth extraction [Unknown]
  - Poor dental condition [Unknown]
